FAERS Safety Report 20569890 (Version 7)
Quarter: 2022Q3

REPORT INFORMATION
  Report Type: Report from Study
  Country: US (occurrence: US)
  Receive Date: 20220309
  Receipt Date: 20220803
  Transmission Date: 20221027
  Serious: No
  Sender: FDA-Public Use
  Company Number: US-NOVARTISTESTPH-NVSC2022US054624

PATIENT
  Sex: Male

DRUGS (3)
  1. ENTRESTO [Suspect]
     Active Substance: SACUBITRIL\VALSARTAN
     Indication: Product used for unknown indication
     Dosage: 1 DOSAGE FORM, QD (49/51MG)
     Route: 048
     Dates: start: 202111
  2. ENTRESTO [Suspect]
     Active Substance: SACUBITRIL\VALSARTAN
     Dosage: UNK (1/2 TAB ,QD)
     Route: 048
  3. CHOLESTEROL [Concomitant]
     Active Substance: CHOLESTEROL
     Indication: Product used for unknown indication
     Dosage: UNK
     Route: 065

REACTIONS (12)
  - Joint injury [Recovering/Resolving]
  - Dehydration [Unknown]
  - Weight decreased [Unknown]
  - Seasonal allergy [Unknown]
  - Lacrimation increased [Unknown]
  - Musculoskeletal discomfort [Unknown]
  - COVID-19 [Unknown]
  - Arthralgia [Unknown]
  - Allergy to plants [Unknown]
  - Gastric disorder [Unknown]
  - Wrong technique in product usage process [Unknown]
  - Inappropriate schedule of product administration [Unknown]
